FAERS Safety Report 8619430-7 (Version None)
Quarter: 2012Q3

REPORT INFORMATION
  Report Type: 
  Country: None (occurrence: None)
  Receive Date: 20120824
  Receipt Date: 20120814
  Transmission Date: 20120928
  Serious: Yes (Other)
  Sender: FDA-Public Use
  Company Number: RU-BRISTOL-MYERS SQUIBB COMPANY-16858722

PATIENT
  Age: 82 Year
  Sex: Female

DRUGS (1)
  1. HYDROXYUREA [Suspect]
     Dosage: 1 DF = 1.5 TABS, UNK DATE: INCREASED TO 2 TABS DAILY

REACTIONS (2)
  - DRUG INEFFECTIVE [None]
  - PRODUCT COUNTERFEIT [None]
